FAERS Safety Report 11220179 (Version 2)
Quarter: 2015Q3

REPORT INFORMATION
  Report Type: Spontaneous
  Country: GB (occurrence: GB)
  Receive Date: 20150625
  Receipt Date: 20150716
  Transmission Date: 20151125
  Serious: Yes (Other)
  Sender: FDA-Public Use
  Company Number: GB-GILEAD-2015-0159593

PATIENT
  Age: 41 Year
  Sex: Female
  Weight: 91.5 kg

DRUGS (3)
  1. TRUVADA [Suspect]
     Active Substance: EMTRICITABINE\TENOFOVIR DISOPROXIL FUMARATE
     Indication: ASYMPTOMATIC HIV INFECTION
     Route: 065
     Dates: start: 200905
  2. RITONAVIR. [Suspect]
     Active Substance: RITONAVIR
     Indication: HIV INFECTION
     Route: 065
     Dates: start: 20130307
  3. DARUNAVIR [Suspect]
     Active Substance: DARUNAVIR
     Indication: ASYMPTOMATIC HIV INFECTION
     Dosage: 800 MG, QD
     Route: 065
     Dates: start: 20130307

REACTIONS (1)
  - Stillbirth [Recovered/Resolved]

NARRATIVE: CASE EVENT DATE: 201503
